FAERS Safety Report 7935756-4 (Version None)
Quarter: 2011Q4

REPORT INFORMATION
  Report Type: 
  Country: None (occurrence: None)
  Receive Date: 20111123
  Receipt Date: 20111108
  Transmission Date: 20120403
  Serious: Yes (Death, Other)
  Sender: FDA-Public Use
  Company Number: PHHY2011US94762

PATIENT
  Age: 43 Year
  Sex: Male

DRUGS (1)
  1. PROLEUKIN [Suspect]
     Indication: METASTATIC MALIGNANT MELANOMA
     Dosage: 7 DF, TOTAL
     Dates: end: 20111001

REACTIONS (2)
  - DEATH [None]
  - METASTASIS [None]
